FAERS Safety Report 24422973 (Version 1)
Quarter: 2024Q4

REPORT INFORMATION
  Report Type: Spontaneous
  Country: FR (occurrence: FR)
  Receive Date: 20241010
  Receipt Date: 20241010
  Transmission Date: 20250115
  Serious: Yes (Other)
  Sender: RANBAXY
  Company Number: FR-SUN PHARMACEUTICAL INDUSTRIES LTD-2024RR-472174

PATIENT
  Age: 72 Year
  Sex: Male
  Weight: 64 kg

DRUGS (6)
  1. OXALIPLATIN [Suspect]
     Active Substance: OXALIPLATIN
     Indication: Gastrointestinal neoplasm
     Dosage: 140 MILLIGRAM, 1DOSE/1CYCLIC
     Route: 040
     Dates: start: 20240220, end: 20240702
  2. OPDIVO [Suspect]
     Active Substance: NIVOLUMAB
     Indication: Gastrointestinal neoplasm
     Dosage: 240 MILLIGRAM, 1DOSE/1CYCLIC
     Route: 040
     Dates: start: 20240220, end: 20240611
  3. ONDANSETRON [Suspect]
     Active Substance: ONDANSETRON
     Indication: Premedication
     Dosage: 8 MILLIGRAM, 1DOSE/1CYCLIC
     Route: 040
     Dates: start: 20240220
  4. FLUOROURACIL [Suspect]
     Active Substance: FLUOROURACIL
     Indication: Gastrointestinal neoplasm
     Dosage: 4.5 GRAM, 1DOSE/1CYCLIC
     Route: 040
     Dates: start: 20240220
  5. METHYLPREDNISOLONE [Suspect]
     Active Substance: METHYLPREDNISOLONE
     Indication: Premedication
     Dosage: 80 MILLIGRAM, 1DOSE/1CYCLIC
     Route: 040
     Dates: start: 20240220
  6. LEUCOVORIN CALCIUM [Suspect]
     Active Substance: LEUCOVORIN CALCIUM
     Indication: Gastrointestinal neoplasm
     Dosage: 650 MILLIGRAM, 1DOSE/1CYCLIC
     Route: 040
     Dates: start: 20240220

REACTIONS (2)
  - Skin exfoliation [Not Recovered/Not Resolved]
  - Erythema [Not Recovered/Not Resolved]

NARRATIVE: CASE EVENT DATE: 20240501
